FAERS Safety Report 19753618 (Version 2)
Quarter: 2021Q3

REPORT INFORMATION
  Report Type: Report from Study
  Country: US (occurrence: US)
  Receive Date: 20210826
  Receipt Date: 20210831
  Transmission Date: 20211014
  Serious: Yes (Hospitalization)
  Sender: FDA-Public Use
  Company Number: US-JNJFOC-20210839722

PATIENT
  Age: 84 Year
  Sex: Female
  Weight: 74.1 kg

DRUGS (4)
  1. ELIQUIS [Concomitant]
     Active Substance: APIXABAN
  2. OPSUMIT [Suspect]
     Active Substance: MACITENTAN
     Indication: PULMONARY HYPERTENSION
     Route: 048
  3. UPTRAVI [Suspect]
     Active Substance: SELEXIPAG
     Indication: PULMONARY HYPERTENSION
     Route: 048
  4. ADEMPAS [Concomitant]
     Active Substance: RIOCIGUAT

REACTIONS (2)
  - Hospitalisation [Unknown]
  - Therapy cessation [Unknown]

NARRATIVE: CASE EVENT DATE: 20210816
